APPROVED DRUG PRODUCT: ISOETHARINE HYDROCHLORIDE
Active Ingredient: ISOETHARINE HYDROCHLORIDE
Strength: 0.167%
Dosage Form/Route: SOLUTION;INHALATION
Application: A089616 | Product #001
Applicant: ASTRAZENECA LP
Approved: Jun 13, 1991 | RLD: No | RS: No | Type: DISCN